FAERS Safety Report 6425160-2 (Version None)
Quarter: 2009Q4

REPORT INFORMATION
  Report Type: 
  Country: None (occurrence: None)
  Receive Date: 20091103
  Receipt Date: 20091021
  Transmission Date: 20100525
  Serious: Yes (Hospitalization)
  Sender: FDA-Public Use
  Company Number: DE-GENENTECH-292985

PATIENT
  Sex: Female

DRUGS (2)
  1. BEVACIZUMAB [Suspect]
     Indication: BREAST CANCER
     Dosage: 15 MG/KG, UNK
     Route: 042
  2. CAPECITABINE [Suspect]
     Indication: BREAST CANCER
     Dosage: 1000 MG/M2, BID
     Route: 048

REACTIONS (1)
  - CHOLECYSTITIS [None]
